APPROVED DRUG PRODUCT: ISOETHARINE HYDROCHLORIDE S/F
Active Ingredient: ISOETHARINE HYDROCHLORIDE
Strength: 1%
Dosage Form/Route: SOLUTION;INHALATION
Application: A089252 | Product #001
Applicant: DEY LP
Approved: Sep 15, 1986 | RLD: No | RS: No | Type: DISCN